FAERS Safety Report 5741594-3 (Version None)
Quarter: 2008Q2

REPORT INFORMATION
  Report Type: 
  Country: None (occurrence: None)
  Receive Date: 20080519
  Receipt Date: 20070126
  Transmission Date: 20081010
  Serious: No
  Sender: FDA-Public Use
  Company Number: US-BAYER-US-2007-002843

PATIENT
  Age: 61 Year
  Sex: Female
  Weight: 66 kg

DRUGS (4)
  1. ULTRAVIST 300 [Suspect]
     Indication: COMPUTERISED TOMOGRAM
     Dosage: UNIT DOSE: 100 ML
     Route: 042
     Dates: start: 20070124, end: 20070124
  2. FOSAMAX [Concomitant]
  3. VITAMINS [Concomitant]
  4. CALCIUM [Concomitant]

REACTIONS (4)
  - ERYTHEMA [None]
  - EYELIDS PRURITUS [None]
  - THROAT IRRITATION [None]
  - URTICARIA [None]
